FAERS Safety Report 23228459 (Version 1)
Quarter: 2023Q4

REPORT INFORMATION
  Report Type: Spontaneous
  Country: CA (occurrence: CA)
  Receive Date: 20231125
  Receipt Date: 20231125
  Transmission Date: 20240110
  Serious: Yes (Death, Other)
  Sender: FDA-Public Use
  Company Number: CA-BAXTER-2022BAX026686

PATIENT
  Age: 44 Year
  Sex: Male

DRUGS (4)
  1. DOXORUBICIN [Suspect]
     Active Substance: DOXORUBICIN
     Indication: Leiomyosarcoma metastatic
     Dosage: UNK, DOSAGE FORM: NOT SPECIFIED
     Route: 065
  2. GEMCITABINE [Suspect]
     Active Substance: GEMCITABINE
     Indication: Leiomyosarcoma metastatic
     Dosage: UNK, DOSAGE FORM: NOT SPECIFIED
     Route: 065
  3. PANTOPRAZOLE [Suspect]
     Active Substance: PANTOPRAZOLE
     Indication: Product used for unknown indication
     Dosage: UNK, DOSAGE FORM: NOT SPECIFIED
     Route: 065
  4. VOTRIENT [Suspect]
     Active Substance: PAZOPANIB HYDROCHLORIDE
     Indication: Soft tissue sarcoma
     Dosage: UNK
     Route: 048

REACTIONS (5)
  - Death [Fatal]
  - Drug ineffective [Fatal]
  - Drug intolerance [Fatal]
  - Product use in unapproved indication [Fatal]
  - Drug interaction [Fatal]
